FAERS Safety Report 21275341 (Version 1)
Quarter: 2022Q3

REPORT INFORMATION
  Report Type: Spontaneous
  Country: US (occurrence: None)
  Receive Date: 20220831
  Receipt Date: 20220831
  Transmission Date: 20221027
  Serious: Yes (Hospitalization)
  Sender: FDA-Public Use
  Company Number: None

PATIENT
  Sex: Female

DRUGS (1)
  1. DEFERASIROX [Suspect]
     Active Substance: DEFERASIROX
     Indication: Myelodysplastic syndrome
     Dosage: 360 MG DAILY ORAL
     Route: 048
     Dates: start: 20220110

REACTIONS (3)
  - Cardiac failure congestive [None]
  - Pulmonary oedema [None]
  - Full blood count decreased [None]
